FAERS Safety Report 7000533-8 (Version None)
Quarter: 2010Q3

REPORT INFORMATION
  Report Type: 
  Country: None (occurrence: None)
  Receive Date: 20100920
  Receipt Date: 20070726
  Transmission Date: 20110219
  Serious: Yes (Other)
  Sender: FDA-Public Use
  Company Number: US-ASTRAZENECA-2007UW04042

PATIENT
  Age: 58 Year
  Sex: Female
  Weight: 86.2 kg

DRUGS (7)
  1. SEROQUEL [Suspect]
     Indication: MENTAL DISORDER
     Dosage: 100 MG - 600 MG
     Route: 048
     Dates: start: 20000124
  2. SEROQUEL [Suspect]
     Route: 048
     Dates: start: 20010101, end: 20020101
  3. RISPERDAL [Concomitant]
     Dates: start: 20040101
  4. UNSPECIFIED MEDICATION [Concomitant]
  5. PREVACID [Concomitant]
  6. CELEXA [Concomitant]
     Dosage: 20- 40 MG DAILY
  7. LEXAPRO [Concomitant]
     Route: 048

REACTIONS (2)
  - DIABETES MELLITUS [None]
  - DIABETIC COMA [None]
